FAERS Safety Report 6453171-X (Version None)
Quarter: 2009Q4

REPORT INFORMATION
  Report Type: 
  Country: None (occurrence: None)
  Receive Date: 20091123
  Receipt Date: 20091123
  Transmission Date: 20100525
  Serious: No
  Sender: FDA-Public Use
  Company Number: None

PATIENT
  Sex: Female
  Weight: 90.7194 kg

DRUGS (3)
  1. CYMBALTA [Suspect]
     Indication: DEPRESSION
     Dosage: 1 CAPSULE 1/DAY PO
     Route: 048
  2. VICODIN [Concomitant]
  3. CLONAZEPAM [Concomitant]

REACTIONS (4)
  - DEPRESSION [None]
  - HEADACHE [None]
  - HYPERHIDROSIS [None]
  - WITHDRAWAL SYNDROME [None]
